FAERS Safety Report 6066036-2 (Version None)
Quarter: 2009Q1

REPORT INFORMATION
  Report Type: 
  Country: None (occurrence: None)
  Receive Date: 20090203
  Receipt Date: 20090116
  Transmission Date: 20090719
  Serious: Yes (Hospitalization)
  Sender: FDA-Public Use
  Company Number: 6048307

PATIENT
  Age: 86 Year
  Sex: Female

DRUGS (12)
  1. BISOPROLOL FUMARATE [Suspect]
     Indication: DRUG USE FOR UNKNOWN INDICATION
     Dosage: ORAL
     Route: 048
     Dates: start: 20080326, end: 20080407
  2. PREVISCAN (TABLET) (FLUINDIONE) [Suspect]
     Indication: DRUG USE FOR UNKNOWN INDICATION
     Dosage: ORAL
     Route: 048
     Dates: end: 20080408
  3. FUROSEMIDE [Suspect]
     Indication: DRUG USE FOR UNKNOWN INDICATION
     Dosage: ORAL
     Route: 048
     Dates: end: 20080407
  4. RAMIPRIL [Suspect]
     Indication: DRUG USE FOR UNKNOWN INDICATION
     Dosage: ORAL
     Route: 048
     Dates: end: 20080414
  5. DISCOTRINE (TRANSDERMAL PATCH) (GLYCERYL TRINITRATE) [Suspect]
     Indication: DRUG USE FOR UNKNOWN INDICATION
     Dosage: TRANSDERMAL
     Route: 062
     Dates: end: 20080403
  6. INIPOMP (TABLET) (PANTOPRAZOLE) [Suspect]
     Indication: DRUG USE FOR UNKNOWN INDICATION
     Dosage: ORAL
     Route: 048
     Dates: end: 20080405
  7. PARACETAMOL (PARACETAMOL) [Concomitant]
  8. AUGMENTIN '125' [Concomitant]
  9. CITALOPRAM HYDROBROMIDE [Concomitant]
  10. AMITRIPTYLINE HCL [Concomitant]
  11. XANAX [Concomitant]
  12. FORLAX (MACROGOL) [Concomitant]

REACTIONS (10)
  - ANAEMIA [None]
  - BRONCHOPNEUMOPATHY [None]
  - HYPERHIDROSIS [None]
  - INFLAMMATION [None]
  - LEUKOPENIA [None]
  - LYMPHOPENIA [None]
  - NEUTROPENIA [None]
  - NORMOCHROMIC NORMOCYTIC ANAEMIA [None]
  - RENAL FAILURE [None]
  - VIRAL INFECTION [None]
